FAERS Safety Report 22175574 (Version 2)
Quarter: 2025Q1

REPORT INFORMATION
  Report Type: Spontaneous
  Country: DE (occurrence: DE)
  Receive Date: 20230405
  Receipt Date: 20250107
  Transmission Date: 20250409
  Serious: Yes (Hospitalization, Other)
  Sender: AUROBINDO
  Company Number: DE-VIIV HEALTHCARE LIMITED-DE2023GSK040293

PATIENT
  Age: 37 Year
  Sex: Male

DRUGS (6)
  1. NEVIRAPINE [Suspect]
     Active Substance: NEVIRAPINE
     Indication: HIV infection
     Route: 065
  2. ZIDOVUDINE [Suspect]
     Active Substance: ZIDOVUDINE
     Indication: HIV infection
     Route: 065
  3. DOLUTEGRAVIR [Suspect]
     Active Substance: DOLUTEGRAVIR
     Indication: HIV infection
     Route: 065
  4. GANCICLOVIR [Suspect]
     Active Substance: GANCICLOVIR
     Indication: Antiviral treatment
     Dosage: 5 MILLIGRAM/KILOGRAM, TWO TIMES A DAY (10 MG/KG ONCE A DAY)
     Route: 042
  5. GANCICLOVIR [Suspect]
     Active Substance: GANCICLOVIR
     Indication: HIV infection
     Route: 042
  6. GANCICLOVIR [Suspect]
     Active Substance: GANCICLOVIR
     Indication: Cytomegalovirus viraemia

REACTIONS (13)
  - Immune recovery uveitis [Recovering/Resolving]
  - Retinal vasculitis [Recovering/Resolving]
  - Cytomegalovirus chorioretinitis [Recovered/Resolved]
  - Macular oedema [Recovered/Resolved]
  - Blindness unilateral [Recovering/Resolving]
  - Retinal haemorrhage [Recovering/Resolving]
  - Cytomegalovirus infection reactivation [Recovering/Resolving]
  - Immune reconstitution inflammatory syndrome [Recovering/Resolving]
  - Retinal oedema [Recovered/Resolved]
  - Visual impairment [Recovering/Resolving]
  - Retinal perivascular sheathing [Recovering/Resolving]
  - Headache [Recovering/Resolving]
  - Photophobia [Recovering/Resolving]

NARRATIVE: CASE EVENT DATE: 20220427
